FAERS Safety Report 13698739 (Version 1)
Quarter: 2017Q2

REPORT INFORMATION
  Report Type: Spontaneous
  Country: US (occurrence: US)
  Receive Date: 20170627
  Receipt Date: 20170627
  Transmission Date: 20170830
  Serious: Yes (Disabling)
  Sender: FDA-Public Use
  Company Number: None

PATIENT
  Age: 32 Year
  Sex: Female
  Weight: 51.75 kg

DRUGS (9)
  1. ALAVERT ALLERGY [Concomitant]
     Active Substance: LORATADINE
  2. RAINBOW LIGHT PRENATAL ONE MULTIVITAMIN [Concomitant]
  3. NAPROXEN SODIUM. [Concomitant]
     Active Substance: NAPROXEN SODIUM
  4. LEVOTHYROXINE. [Concomitant]
     Active Substance: LEVOTHYROXINE
  5. ALEVE [Concomitant]
     Active Substance: NAPROXEN SODIUM
  6. DROSPIRENONE AND ETHINYL ESTRADIOL [Suspect]
     Active Substance: DROSPIRENONE\ETHINYL ESTRADIOL
     Indication: MENORRHAGIA
     Dosage: ?          OTHER STRENGTH:MG;QUANTITY:28 TABLET(S);?
     Route: 048
     Dates: start: 20170531, end: 20170626
  7. YASMIN [Suspect]
     Active Substance: DROSPIRENONE\ETHINYL ESTRADIOL
  8. VITAFUSION FIBER+CALCIUM [Concomitant]
  9. LORATADINE. [Concomitant]
     Active Substance: LORATADINE

REACTIONS (4)
  - Product quality issue [None]
  - Product substitution issue [None]
  - Vaginal haemorrhage [None]
  - Abnormal withdrawal bleeding [None]

NARRATIVE: CASE EVENT DATE: 20170531
